FAERS Safety Report 14847635 (Version 1)
Quarter: 2018Q2

REPORT INFORMATION
  Report Type: Spontaneous
  Country: US (occurrence: US)
  Receive Date: 20180504
  Receipt Date: 20180504
  Transmission Date: 20180711
  Serious: No
  Sender: FDA-Public Use
  Company Number: US-TARO-2018TAR00057

PATIENT
  Sex: Female

DRUGS (1)
  1. DAPSONE GEL 5% [Suspect]
     Active Substance: DAPSONE

REACTIONS (1)
  - Rash [Unknown]
